FAERS Safety Report 5349918-6 (Version None)
Quarter: 2007Q2

REPORT INFORMATION
  Report Type: 
  Country: None (occurrence: None)
  Receive Date: 20070607
  Receipt Date: 20070529
  Transmission Date: 20071010
  Serious: Yes (Hospitalization, Other)
  Sender: FDA-Public Use
  Company Number: US-PFIZER INC-2007045278

PATIENT
  Sex: Female
  Weight: 62.6 kg

DRUGS (12)
  1. DILANTIN [Suspect]
     Indication: CONVULSION
  2. ARICEPT [Suspect]
     Indication: MEMORY IMPAIRMENT
  3. NORVASC [Concomitant]
  4. ZOLOFT [Concomitant]
  5. NITROGLYCERIN [Concomitant]
  6. CRESTOR [Concomitant]
  7. ZETIA [Concomitant]
  8. PLAVIX [Concomitant]
  9. ATENOLOL [Concomitant]
  10. KLOR-CON [Concomitant]
  11. PRILOSEC [Concomitant]
  12. MAGNESIUM OXIDE [Concomitant]

REACTIONS (3)
  - ASTHENIA [None]
  - ATRIOVENTRICULAR BLOCK [None]
  - MYOCARDIAL INFARCTION [None]
